FAERS Safety Report 20142737 (Version 1)
Quarter: 2021Q4

REPORT INFORMATION
  Report Type: Spontaneous
  Country: US (occurrence: None)
  Receive Date: 20211202
  Receipt Date: 20211202
  Transmission Date: 20220303
  Serious: No
  Sender: FDA-Public Use
  Company Number: US-ROCHE-2909885

PATIENT
  Sex: Female

DRUGS (3)
  1. LUCENTIS [Suspect]
     Active Substance: RANIBIZUMAB
     Indication: Macular degeneration
     Route: 065
  2. EYLEA [Suspect]
     Active Substance: AFLIBERCEPT
     Indication: Product used for unknown indication
     Route: 065
  3. BEOVU [Suspect]
     Active Substance: BROLUCIZUMAB-DBLL
     Indication: Product used for unknown indication
     Route: 065

REACTIONS (2)
  - Drug ineffective [Unknown]
  - No adverse event [Unknown]
